FAERS Safety Report 9334184 (Version 1)
Quarter: 2013Q2

REPORT INFORMATION
  Report Type: Spontaneous
  Country: US (occurrence: US)
  Receive Date: 20130606
  Receipt Date: 20130606
  Transmission Date: 20140414
  Serious: No
  Sender: FDA-Public Use
  Company Number: US-AMGEN-USASP2013028707

PATIENT
  Age: 79 Year
  Sex: Female

DRUGS (9)
  1. PROLIA [Suspect]
     Indication: OSTEOPOROSIS POSTMENOPAUSAL
     Dosage: UNK
     Dates: start: 201207
  2. SYNTHROID [Concomitant]
  3. POTASSIUM [Concomitant]
  4. SPIRONOLACTONE [Concomitant]
  5. AMLODIPINE [Concomitant]
  6. CALCIUM [Concomitant]
  7. VITAMIN D                          /00107901/ [Concomitant]
  8. VITAMIN B-12 [Concomitant]
  9. PRESERVISION [Concomitant]

REACTIONS (3)
  - Bursitis [Unknown]
  - Wheelchair user [Unknown]
  - Arthritis [Unknown]
